FAERS Safety Report 17863221 (Version 3)
Quarter: 2021Q1

REPORT INFORMATION
  Report Type: Spontaneous
  Country: US (occurrence: US)
  Receive Date: 20200605
  Receipt Date: 20210323
  Transmission Date: 20210419
  Serious: Yes (Death, Disabling, Other)
  Sender: FDA-Public Use
  Company Number: US-ASTRAZENECA-2019SE11520

PATIENT
  Age: 12933 Day
  Sex: Male
  Weight: 110.7 kg

DRUGS (70)
  1. WARFARIN [Concomitant]
     Active Substance: WARFARIN
  2. FERREX [Concomitant]
     Active Substance: FERRIC POLYSACCHARIDE COMPLEX
  3. MAGNESIUM OXIDE. [Concomitant]
     Active Substance: MAGNESIUM OXIDE
  4. ZOSYN [Concomitant]
     Active Substance: PIPERACILLIN SODIUM\TAZOBACTAM SODIUM
  5. NEXIUM [Suspect]
     Active Substance: ESOMEPRAZOLE MAGNESIUM
     Indication: GASTROOESOPHAGEAL REFLUX DISEASE
     Route: 048
     Dates: start: 2013, end: 2016
  6. AZITHROMYCIN ANHYDROUS. [Concomitant]
     Active Substance: AZITHROMYCIN ANHYDROUS
     Indication: ANTIBIOTIC LEVEL
     Dates: start: 2013, end: 2017
  7. LEVOFLOXACIN. [Concomitant]
     Active Substance: LEVOFLOXACIN
     Indication: ANTIBIOTIC LEVEL
     Dates: start: 2017
  8. PRAVASTATIN. [Concomitant]
     Active Substance: PRAVASTATIN
     Dates: start: 2013, end: 2016
  9. PREDNISONE. [Concomitant]
     Active Substance: PREDNISONE
     Dates: start: 20170927
  10. SINGULAIR [Concomitant]
     Active Substance: MONTELUKAST SODIUM
  11. KETOCONAZOLE. [Concomitant]
     Active Substance: KETOCONAZOLE
  12. RENA?VITE [Concomitant]
     Active Substance: ASCORBIC ACID\BIOTIN\CALCIUM PANTOTHENATE\CYANOCOBALAMIN\FOLIC ACID\NIACINAMIDE\PYRIDOXINE HYDROCHLORIDE\RIBOFLAVIN\THIAMINE MONONITRATE
  13. SENSIPAR [Concomitant]
     Active Substance: CINACALCET HYDROCHLORIDE
  14. OXYCODONE [Concomitant]
     Active Substance: OXYCODONE
  15. SENNA [Concomitant]
     Active Substance: SENNA LEAF\SENNOSIDES\SENNOSIDES A AND B
  16. NOVOLOG [Concomitant]
     Active Substance: INSULIN ASPART
  17. RENVELA [Concomitant]
     Active Substance: SEVELAMER CARBONATE
  18. FERATAB [Concomitant]
  19. ZOFRAN [Concomitant]
     Active Substance: ONDANSETRON HYDROCHLORIDE
  20. DILAUDID [Concomitant]
     Active Substance: HYDROMORPHONE HYDROCHLORIDE
  21. DEXTROSE. [Concomitant]
     Active Substance: DEXTROSE
  22. ATIVAN [Concomitant]
     Active Substance: LORAZEPAM
  23. NEXIUM [Suspect]
     Active Substance: ESOMEPRAZOLE MAGNESIUM
     Indication: GASTROOESOPHAGEAL REFLUX DISEASE
     Route: 048
     Dates: start: 20130806
  24. NEXIUM [Suspect]
     Active Substance: ESOMEPRAZOLE MAGNESIUM
     Indication: GASTROOESOPHAGEAL REFLUX DISEASE
     Dosage: GENERIC
     Route: 065
     Dates: start: 2017, end: 2018
  25. NEXIUM [Suspect]
     Active Substance: ESOMEPRAZOLE MAGNESIUM
     Indication: GASTROOESOPHAGEAL REFLUX DISEASE
     Route: 048
     Dates: start: 20130204
  26. HYDROMORPHONE [Concomitant]
     Active Substance: HYDROMORPHONE
  27. NOVOLOG [Concomitant]
     Active Substance: INSULIN ASPART
  28. ALPRAZOLAM. [Concomitant]
     Active Substance: ALPRAZOLAM
  29. MOXIFLOXACIN. [Concomitant]
     Active Substance: MOXIFLOXACIN
     Indication: ANTIBIOTIC LEVEL
     Dates: start: 2016
  30. PROTOPIC [Concomitant]
     Active Substance: TACROLIMUS
     Indication: IMMUNOSUPPRESSION
     Dates: start: 2013
  31. LIPITOR [Concomitant]
     Active Substance: ATORVASTATIN CALCIUM
  32. VENTOLIN [Concomitant]
     Active Substance: ALBUTEROL SULFATE
  33. TACROLIMUS. [Concomitant]
     Active Substance: TACROLIMUS
  34. TEMOVATE [Concomitant]
     Active Substance: CLOBETASOL PROPIONATE
  35. COLACE [Concomitant]
     Active Substance: DOCUSATE SODIUM
  36. GABAPENTIN. [Concomitant]
     Active Substance: GABAPENTIN
  37. BENAZEPRIL [Concomitant]
     Active Substance: BENAZEPRIL HYDROCHLORIDE
  38. COUMADIN [Concomitant]
     Active Substance: WARFARIN SODIUM
  39. LANTUS [Concomitant]
     Active Substance: INSULIN GLARGINE
  40. FOLIC ACID. [Concomitant]
     Active Substance: FOLIC ACID
  41. XYLOCAINE [Concomitant]
     Active Substance: LIDOCAINE HYDROCHLORIDE
  42. TYLENOL [Concomitant]
     Active Substance: ACETAMINOPHEN
  43. NARCAN [Concomitant]
     Active Substance: NALOXONE HYDROCHLORIDE
  44. PANTOPRAZOLE [Concomitant]
     Active Substance: PANTOPRAZOLE
     Dates: start: 20170525
  45. LISINOPRIL. [Concomitant]
     Active Substance: LISINOPRIL
     Indication: HYPERTENSION
     Dates: start: 2017
  46. CLOPIDOGREL [Concomitant]
     Active Substance: CLOPIDOGREL BISULFATE
     Indication: ANTICOAGULANT THERAPY
     Dates: start: 2017
  47. AMPICILLIN [Concomitant]
     Active Substance: AMPICILLIN
     Indication: ANTIBIOTIC LEVEL
     Dates: start: 2014
  48. METOLAZONE. [Concomitant]
     Active Substance: METOLAZONE
  49. ABILIFY [Concomitant]
     Active Substance: ARIPIPRAZOLE
     Dates: start: 20110120
  50. NEXIUM [Suspect]
     Active Substance: ESOMEPRAZOLE MAGNESIUM
     Indication: GASTROOESOPHAGEAL REFLUX DISEASE
     Route: 048
     Dates: start: 2006
  51. PROMETHAZINE [Concomitant]
     Active Substance: PROMETHAZINE HYDROCHLORIDE
  52. LEVOTHYROXINE. [Concomitant]
     Active Substance: LEVOTHYROXINE
  53. ZANTAC [Concomitant]
     Active Substance: RANITIDINE HYDROCHLORIDE
     Dates: start: 20140130
  54. LIDOCAINE. [Concomitant]
     Active Substance: LIDOCAINE
  55. CITALOPRAM [Concomitant]
     Active Substance: CITALOPRAM HYDROBROMIDE
  56. TAMIFLU [Concomitant]
     Active Substance: OSELTAMIVIR PHOSPHATE
  57. AMOXICILLIN. [Concomitant]
     Active Substance: AMOXICILLIN
     Dates: start: 20160606
  58. PULMICORT TURBUHALER [Concomitant]
     Active Substance: BUDESONIDE
     Dates: start: 20170322
  59. TESTOSTERONE. [Concomitant]
     Active Substance: TESTOSTERONE
     Dates: start: 20161109
  60. TOPAMAX [Concomitant]
     Active Substance: TOPIRAMATE
  61. NEXIUM [Suspect]
     Active Substance: ESOMEPRAZOLE MAGNESIUM
     Indication: GASTROOESOPHAGEAL REFLUX DISEASE
     Route: 048
     Dates: start: 20100105
  62. AMLODIPINE [Concomitant]
     Active Substance: AMLODIPINE BESYLATE
  63. CITALOPRAM [Concomitant]
     Active Substance: CITALOPRAM HYDROBROMIDE
  64. LISINOPRIL. [Concomitant]
     Active Substance: LISINOPRIL
     Indication: CARDIAC FAILURE
     Dates: start: 2017
  65. FUROSEMIDE. [Concomitant]
     Active Substance: FUROSEMIDE
     Indication: FLUID RETENTION
     Dates: start: 2013
  66. TRICOR [Concomitant]
     Active Substance: FENOFIBRATE
  67. ZINC SULFATE. [Concomitant]
     Active Substance: ZINC SULFATE
  68. MIRALAX [Concomitant]
     Active Substance: POLYETHYLENE GLYCOL 3350
  69. TIZANIDINE. [Concomitant]
     Active Substance: TIZANIDINE
  70. VANCOMYCIN [Concomitant]
     Active Substance: VANCOMYCIN

REACTIONS (9)
  - End stage renal disease [Fatal]
  - Renal failure [Unknown]
  - Depression [Unknown]
  - Acute left ventricular failure [Fatal]
  - Nephrogenic anaemia [Unknown]
  - Agitation [Unknown]
  - Rebound acid hypersecretion [Unknown]
  - Acute respiratory failure [Fatal]
  - Chronic kidney disease [Unknown]

NARRATIVE: CASE EVENT DATE: 20130227
